FAERS Safety Report 13901308 (Version 2)
Quarter: 2018Q2

REPORT INFORMATION
  Report Type: Spontaneous
  Country: ES (occurrence: ES)
  Receive Date: 20170824
  Receipt Date: 20180402
  Transmission Date: 20180711
  Serious: Yes (Hospitalization, Other)
  Sender: FDA-Public Use
  Company Number: ES-AMGEN-ESPSP2017124648

PATIENT
  Sex: Female
  Weight: 1.53 kg

DRUGS (4)
  1. BETAMETHASONE. [Suspect]
     Active Substance: BETAMETHASONE
     Indication: FOETAL EXPOSURE DURING PREGNANCY
     Route: 064
  2. CALCITONIN SALMON. [Suspect]
     Active Substance: CALCITONIN SALMON
     Indication: FOETAL EXPOSURE DURING PREGNANCY
     Route: 064
  3. CINACALCET HCL [Suspect]
     Active Substance: CINACALCET HYDROCHLORIDE
     Indication: EXPOSURE DURING PREGNANCY
     Route: 064
  4. FRUSEMIDE [Suspect]
     Active Substance: FUROSEMIDE
     Indication: FOETAL EXPOSURE DURING PREGNANCY
     Route: 064

REACTIONS (8)
  - Foetal exposure during pregnancy [Unknown]
  - Neonatal cholestasis [Recovered/Resolved]
  - Foetal growth restriction [Unknown]
  - Foetal heart rate deceleration abnormality [Unknown]
  - Bilirubin conjugated increased [Unknown]
  - Jaundice neonatal [Recovered/Resolved]
  - Neonatal hypocalcaemia [Recovered/Resolved]
  - Low birth weight baby [Unknown]
